FAERS Safety Report 8511239-8 (Version None)
Quarter: 2012Q3

REPORT INFORMATION
  Report Type: 
  Country: None (occurrence: None)
  Receive Date: 20120716
  Receipt Date: 20120713
  Transmission Date: 20120928
  Serious: Yes (Other)
  Sender: FDA-Public Use
  Company Number: PHHY2012TR054375

PATIENT
  Age: 37 Year
  Sex: Female

DRUGS (2)
  1. METOCLOPRAMIDE [Suspect]
     Indication: NAUSEA
     Dosage: 1 DF (AMPOULE), ONCE/SINGLE
     Route: 042
  2. METOCLOPRAMIDE [Suspect]
     Indication: VOMITING
     Route: 048

REACTIONS (5)
  - SENSORY LOSS [None]
  - FATIGUE [None]
  - HYPOAESTHESIA [None]
  - PARAPARESIS [None]
  - MUSCLE CONTRACTURE [None]
